FAERS Safety Report 26108926 (Version 1)
Quarter: 2025Q4

REPORT INFORMATION
  Report Type: Spontaneous
  Country: GB (occurrence: GB)
  Receive Date: 20251201
  Receipt Date: 20251201
  Transmission Date: 20260117
  Serious: Yes (Other)
  Sender: NOVO NORDISK
  Company Number: None

PATIENT
  Age: 63 Year
  Sex: Female
  Weight: 90 kg

DRUGS (1)
  1. OZEMPIC [Suspect]
     Active Substance: SEMAGLUTIDE
     Indication: Diabetes mellitus
     Dosage: 2 MG, QW
     Dates: start: 20251018, end: 20251118

REACTIONS (2)
  - Skin burning sensation [Not Recovered/Not Resolved]
  - Oral discomfort [Not Recovered/Not Resolved]
